FAERS Safety Report 5429892-4 (Version None)
Quarter: 2007Q3

REPORT INFORMATION
  Report Type: 
  Country: None (occurrence: None)
  Receive Date: 20070827
  Receipt Date: 20070810
  Transmission Date: 20080115
  Serious: Yes (Hospitalization, Other)
  Sender: FDA-Public Use
  Company Number: 2007US-09166

PATIENT
  Age: 73 Year
  Sex: Female

DRUGS (2)
  1. ISOPTIN SR [Suspect]
     Indication: ANGINA PECTORIS
     Dosage: 240 MG, QD, ORAL
     Route: 048
     Dates: start: 20031203
  2. ISOPTIN SR [Suspect]
     Indication: HYPERTENSION
     Dosage: 240 MG, QD, ORAL
     Route: 048
     Dates: start: 20031203

REACTIONS (3)
  - BLOOD PRESSURE INCREASED [None]
  - DRUG INEFFECTIVE [None]
  - DYSPNOEA [None]
